FAERS Safety Report 5222496-8 (Version None)
Quarter: 2007Q1

REPORT INFORMATION
  Report Type: 
  Country: None (occurrence: None)
  Receive Date: 20070129
  Receipt Date: 20061031
  Transmission Date: 20070707
  Serious: Yes (Hospitalization)
  Sender: FDA-Public Use
  Company Number: US-BRISTOL-MYERS SQUIBB COMPANY-13561550

PATIENT
  Sex: Female

DRUGS (1)
  1. CARDIOLITE [Suspect]
     Indication: CARDIAC IMAGING PROCEDURE
     Dates: start: 20061003, end: 20061003

REACTIONS (4)
  - BRADYCARDIA [None]
  - FLUSHING [None]
  - HYPOTENSION [None]
  - SYNCOPE [None]
